FAERS Safety Report 24888357 (Version 1)
Quarter: 2025Q1

REPORT INFORMATION
  Report Type: Spontaneous
  Country: IT (occurrence: IT)
  Receive Date: 20250127
  Receipt Date: 20250127
  Transmission Date: 20250408
  Serious: Yes (Disabling, Other)
  Sender: JUBILANT
  Company Number: None

PATIENT
  Age: 28 Year
  Sex: Male

DRUGS (11)
  1. LAMOTRIGINE [Interacting]
     Active Substance: LAMOTRIGINE
     Indication: Tonic convulsion
     Dosage: 175 MG, ONCE PER DAY
     Route: 065
  2. LAMOTRIGINE [Interacting]
     Active Substance: LAMOTRIGINE
     Indication: Petit mal epilepsy
     Dosage: 150 MG, ONCE PER DAY
     Route: 065
  3. VALPROIC ACID [Interacting]
     Active Substance: VALPROIC ACID
     Indication: Tonic convulsion
     Dosage: 1800 MG, ONCE PER DAY
     Route: 065
  4. VALPROIC ACID [Interacting]
     Active Substance: VALPROIC ACID
     Indication: Petit mal epilepsy
     Dosage: 600 MG, ONCE PER DAY
     Route: 065
  5. CLOBAZAM [Interacting]
     Active Substance: CLOBAZAM
     Indication: Tonic convulsion
     Dosage: 30 MG, ONCE PER DAY
     Route: 065
  6. CLOBAZAM [Interacting]
     Active Substance: CLOBAZAM
     Indication: Myoclonic epilepsy
     Dosage: 20 MG, ONCE PER DAY
     Route: 065
  7. CLOBAZAM [Interacting]
     Active Substance: CLOBAZAM
     Indication: Generalised tonic-clonic seizure
  8. CLOBAZAM [Interacting]
     Active Substance: CLOBAZAM
     Indication: Petit mal epilepsy
  9. CENOBAMATE [Interacting]
     Active Substance: CENOBAMATE
     Indication: Tonic convulsion
     Dosage: 50 MG, ONCE PER DAY (INITIATED WITH A 24-WEEK SLOW TITRATION SCHEDULE AIMING FOR A DAILY TARGET DOSE
     Route: 065
  10. CENOBAMATE [Interacting]
     Active Substance: CENOBAMATE
     Indication: Petit mal epilepsy
     Dosage: 12.5 MG, ONCE PER DAY
     Route: 065
  11. CENOBAMATE [Interacting]
     Active Substance: CENOBAMATE
     Dosage: 150 MG, ONCE PER DAY (INCREASED CENOBAMATE DOSE OVER 20 WEEKS WITH A TARGET OF 150 MG/DIE WAS MADE)
     Route: 065

REACTIONS (7)
  - Disorientation [Unknown]
  - Ammonia increased [Unknown]
  - Drug interaction [Unknown]
  - Drug interaction [Unknown]
  - Somnolence [Unknown]
  - Brain fog [Unknown]
  - Gait disturbance [Unknown]
